FAERS Safety Report 5607075-2 (Version None)
Quarter: 2008Q1

REPORT INFORMATION
  Report Type: 
  Country: None (occurrence: None)
  Receive Date: 20080129
  Receipt Date: 20080117
  Transmission Date: 20080703
  Serious: Yes (Other)
  Sender: FDA-Public Use
  Company Number: US-PFIZER INC-2008007505

PATIENT
  Sex: Female

DRUGS (1)
  1. CHANTIX [Suspect]

REACTIONS (5)
  - AGGRESSION [None]
  - CRYING [None]
  - INSOMNIA [None]
  - MOOD SWINGS [None]
  - VIOLENCE-RELATED SYMPTOM [None]
